FAERS Safety Report 6914732-4 (Version None)
Quarter: 2010Q3

REPORT INFORMATION
  Report Type: 
  Country: None (occurrence: None)
  Receive Date: 20100809
  Receipt Date: 20061213
  Transmission Date: 20110219
  Serious: No
  Sender: FDA-Public Use
  Company Number: US-PFIZER INC-2006153428

PATIENT
  Sex: Male

DRUGS (1)
  1. NAVANE [Suspect]
     Dates: start: 20051101

REACTIONS (1)
  - NEUROPATHY PERIPHERAL [None]
